FAERS Safety Report 25962153 (Version 1)
Quarter: 2025Q4

REPORT INFORMATION
  Report Type: Spontaneous
  Country: NZ (occurrence: NZ)
  Receive Date: 20251027
  Receipt Date: 20251027
  Transmission Date: 20260118
  Serious: Yes (Other)
  Sender: MYLAN
  Company Number: NZ-MYLANLABS-2025M1090375

PATIENT
  Age: 35 Year
  Sex: Female

DRUGS (24)
  1. TOBRAMYCIN [Suspect]
     Active Substance: TOBRAMYCIN
     Indication: Mycobacterium chelonae infection
     Dosage: UNK, QID
  2. TOBRAMYCIN [Suspect]
     Active Substance: TOBRAMYCIN
     Indication: Keratitis
     Dosage: UNK, QH
  3. TOBRAMYCIN [Suspect]
     Active Substance: TOBRAMYCIN
     Indication: Mycobacterium chelonae infection
     Dosage: UNK, QH
  4. TOBRAMYCIN [Suspect]
     Active Substance: TOBRAMYCIN
     Indication: Keratitis
  5. CIPROFLOXACIN [Suspect]
     Active Substance: CIPROFLOXACIN
     Indication: Mycobacterium chelonae infection
     Dosage: UNK, QD, STOPPED FOR 48 HOUR
  6. CIPROFLOXACIN [Suspect]
     Active Substance: CIPROFLOXACIN
     Indication: Keratitis
  7. CEFUROXIME [Suspect]
     Active Substance: CEFUROXIME
     Indication: Mycobacterium chelonae infection
     Dosage: UNK, QH, DROPS
  8. CEFUROXIME [Suspect]
     Active Substance: CEFUROXIME
     Indication: Keratitis
  9. AMIKACIN [Suspect]
     Active Substance: AMIKACIN
     Indication: Mycobacterium chelonae infection
     Dosage: UNK, QH
  10. AMIKACIN [Suspect]
     Active Substance: AMIKACIN
     Indication: Keratitis
  11. AMIKACIN [Suspect]
     Active Substance: AMIKACIN
     Indication: Mycobacterium chelonae infection
     Dosage: UNK, RECEIVED 0.1ML OF 2.5 MG/ML
  12. AMIKACIN [Suspect]
     Active Substance: AMIKACIN
     Indication: Keratitis
  13. AMIKACIN [Suspect]
     Active Substance: AMIKACIN
     Indication: Mycobacterium chelonae infection
     Dosage: UNK
  14. AMIKACIN [Suspect]
     Active Substance: AMIKACIN
     Indication: Keratitis
  15. POVIDONE-IODINE [Suspect]
     Active Substance: POVIDONE-IODINE
     Indication: Mycobacterium chelonae infection
     Dosage: UNK, RECEIVED FOR 5 MINS
  16. POVIDONE-IODINE [Suspect]
     Active Substance: POVIDONE-IODINE
     Indication: Keratitis
  17. AZITHROMYCIN [Suspect]
     Active Substance: AZITHROMYCIN
     Indication: Mycobacterium chelonae infection
     Dosage: UNK
  18. AZITHROMYCIN [Suspect]
     Active Substance: AZITHROMYCIN
     Indication: Keratitis
  19. LINEZOLID [Suspect]
     Active Substance: LINEZOLID
     Indication: Mycobacterium chelonae infection
     Dosage: UNK
  20. LINEZOLID [Suspect]
     Active Substance: LINEZOLID
     Indication: Keratitis
  21. PREDNISONE [Concomitant]
     Active Substance: PREDNISONE
     Indication: Inflammation
     Dosage: 60 MILLIGRAM, QD
  22. NATAMYCIN [Concomitant]
     Active Substance: NATAMYCIN
     Indication: Fungal infection
     Dosage: UNK
  23. CLARITHROMYCIN [Concomitant]
     Active Substance: CLARITHROMYCIN
     Indication: Mycobacterium chelonae infection
     Dosage: UNK, QH, VERY SLOW TAPER IN FREQUENCY OVER 3 WEEKS
  24. CLARITHROMYCIN [Concomitant]
     Active Substance: CLARITHROMYCIN
     Indication: Keratitis

REACTIONS (5)
  - Ocular toxicity [Recovering/Resolving]
  - Eye pain [Recovering/Resolving]
  - Conjunctivitis [Recovering/Resolving]
  - Corneal opacity [Recovering/Resolving]
  - Drug ineffective [Unknown]
